FAERS Safety Report 17655220 (Version 5)
Quarter: 2022Q1

REPORT INFORMATION
  Report Type: Spontaneous
  Country: US (occurrence: US)
  Receive Date: 20200410
  Receipt Date: 20220318
  Transmission Date: 20220424
  Serious: Yes (Other)
  Sender: FDA-Public Use
  Company Number: US-SA-2020SA091994

PATIENT
  Sex: Male

DRUGS (1)
  1. DUPIXENT [Suspect]
     Active Substance: DUPILUMAB
     Indication: Dermatitis atopic
     Dosage: 300 MG, QOW
     Route: 058
     Dates: start: 20170706

REACTIONS (6)
  - Unevaluable event [Unknown]
  - Lacrimation increased [Unknown]
  - Arthralgia [Unknown]
  - Dry eye [Unknown]
  - Eye pruritus [Unknown]
  - Eye pruritus [Unknown]
